FAERS Safety Report 4338714-4 (Version None)
Quarter: 2004Q2

REPORT INFORMATION
  Report Type: 
  Country: None (occurrence: None)
  Receive Date: 20040414
  Receipt Date: 20040112
  Transmission Date: 20050107
  Serious: Yes (Death)
  Sender: FDA-Public Use
  Company Number: GB-ROCHE-355917

PATIENT
  Age: 33 Year
  Sex: Male

DRUGS (1)
  1. ROACCUTANE [Suspect]
     Indication: SKIN DISORDER
     Route: 065

REACTIONS (4)
  - COMPLETED SUICIDE [None]
  - GUN SHOT WOUND [None]
  - INTENTIONAL SELF-INJURY [None]
  - JOINT INJURY [None]
